FAERS Safety Report 8081713-X (Version None)
Quarter: 2012Q1

REPORT INFORMATION
  Report Type: 
  Country: None (occurrence: None)
  Receive Date: 20120130
  Receipt Date: 20120123
  Transmission Date: 20120608
  Serious: Yes (Hospitalization)
  Sender: FDA-Public Use
  Company Number: US-PFIZER INC-2010074953

PATIENT
  Sex: Male
  Weight: 70.7 kg

DRUGS (4)
  1. PLACEBO [Suspect]
     Indication: PROSTATE CANCER
     Dosage: UNK
     Route: 048
     Dates: start: 20100104, end: 20100614
  2. PREDNISONE TAB [Suspect]
     Indication: PROSTATE CANCER
     Dosage: 5 MG, 2X/DAY
     Route: 048
     Dates: start: 20100105, end: 20100614
  3. PERCOCET [Concomitant]
     Indication: PAIN
     Route: 048
  4. DOCUSATE SODIUM [Concomitant]
     Indication: FAECES HARD
     Dosage: UNK
     Route: 048

REACTIONS (5)
  - MUSCULAR WEAKNESS [None]
  - ANAEMIA [None]
  - PARANEOPLASTIC SYNDROME [None]
  - ABASIA [None]
  - METASTASES TO BONE [None]
